FAERS Safety Report 24162026 (Version 1)
Quarter: 2024Q3

REPORT INFORMATION
  Report Type: Spontaneous
  Country: US (occurrence: US)
  Receive Date: 20240801
  Receipt Date: 20240801
  Transmission Date: 20241017
  Serious: No
  Sender: GLENMARK
  Company Number: US-GLENMARK PHARMACEUTICALS-2024GMK089273

PATIENT

DRUGS (1)
  1. MUPIROCIN [Suspect]
     Active Substance: MUPIROCIN
     Indication: Postoperative care
     Dosage: UNK, (INTRANASAL), PRESCRIBE FOR 5 DAYS
     Route: 045

REACTIONS (7)
  - Impaired healing [Unknown]
  - Product use issue [Unknown]
  - Product use in unapproved indication [Unknown]
  - Fatigue [Unknown]
  - Application site irritation [Unknown]
  - Application site dryness [Unknown]
  - Application site pain [Unknown]
